FAERS Safety Report 21105581 (Version 1)
Quarter: 2022Q3

REPORT INFORMATION
  Report Type: Spontaneous
  Country: US (occurrence: US)
  Receive Date: 20220720
  Receipt Date: 20220720
  Transmission Date: 20221026
  Serious: Yes (Hospitalization)
  Sender: FDA-Public Use
  Company Number: US-RIGEL PHARMACEUTICALS, INC.-2022FOS000523

PATIENT
  Sex: Female

DRUGS (3)
  1. TAVALISSE [Suspect]
     Active Substance: FOSTAMATINIB
     Indication: Immune thrombocytopenia
     Dosage: 150 MG, BID
     Route: 048
     Dates: start: 2022
  2. FAT EMULSION NOS [Concomitant]
     Active Substance: EGG PHOSPHOLIPIDS\SAFFLOWER OIL\SOYBEAN OIL
     Indication: Product used for unknown indication
  3. AMINO ACIDS\CARBOHYDRATES\MINERALS\VITAMINS [Concomitant]
     Active Substance: AMINO ACIDS\CARBOHYDRATES\MINERALS\VITAMINS
     Indication: Product used for unknown indication
     Dosage: UNK

REACTIONS (12)
  - Hospitalisation [Unknown]
  - Candida infection [Unknown]
  - Tongue ulceration [Unknown]
  - Weight decreased [Unknown]
  - Electrolyte imbalance [Unknown]
  - Haemoglobin decreased [Unknown]
  - Liver disorder [Unknown]
  - Yellow skin [Unknown]
  - Ocular icterus [Unknown]
  - Blood bilirubin increased [Unknown]
  - Product dose omission issue [Unknown]
  - Fatigue [Unknown]

NARRATIVE: CASE EVENT DATE: 20220101
